FAERS Safety Report 7829227-3 (Version None)
Quarter: 2011Q4

REPORT INFORMATION
  Report Type: 
  Country: None (occurrence: None)
  Receive Date: 20111020
  Receipt Date: 20111013
  Transmission Date: 20120403
  Serious: Yes (Other)
  Sender: FDA-Public Use
  Company Number: US-BAYER-2011-099714

PATIENT
  Age: 49 Year
  Sex: Female
  Weight: 73 kg

DRUGS (1)
  1. ASPIRIN [Suspect]
     Dosage: 1 DF, ONCE
     Route: 048
     Dates: start: 20111009, end: 20111009

REACTIONS (8)
  - DYSPNOEA [None]
  - OEDEMA PERIPHERAL [None]
  - VAGINAL HAEMORRHAGE [None]
  - HYPERSENSITIVITY [None]
  - PRURITUS GENERALISED [None]
  - RASH GENERALISED [None]
  - BLOOD PRESSURE INCREASED [None]
  - CHEST PAIN [None]
